FAERS Safety Report 6250404-X (Version None)
Quarter: 2009Q2

REPORT INFORMATION
  Report Type: 
  Country: None (occurrence: None)
  Receive Date: 20090630
  Receipt Date: 20090625
  Transmission Date: 20091009
  Serious: Yes (Hospitalization)
  Sender: FDA-Public Use
  Company Number: DE-BRISTOL-MYERS SQUIBB COMPANY-14658306

PATIENT
  Age: 45 Year
  Sex: Male
  Weight: 82 kg

DRUGS (13)
  1. CETUXIMAB [Suspect]
     Indication: NON-SMALL CELL LUNG CANCER STAGE IV
     Dosage: RECENT INFUSION ON 27MAY2009.ACTUAL DOSE(40ML)DURATION:24D.ON UNSPEIFIED DATE DOSE REDUCED TO HALF
     Route: 042
     Dates: start: 20090504, end: 20090504
  2. CISPLATIN [Suspect]
     Indication: NON-SMALL CELL LUNG CANCER STAGE IV
     Dosage: ON DAY 1 EVERY 21 DAYS DURATION:24D STARTED-04MAY09 RECENT INFUSION-27MAY09
     Route: 042
     Dates: start: 20090504, end: 20090504
  3. ALIMTA [Suspect]
     Indication: NON-SMALL CELL LUNG CANCER STAGE IV
     Dosage: VIAL;ON DAY 1 EVERY 21 DAYS STARTED-04MAY09
     Route: 042
     Dates: start: 20090518, end: 20090518
  4. FOLIC ACID [Concomitant]
     Dates: start: 20090418, end: 20090529
  5. VITAMIN B-12 [Concomitant]
     Dates: start: 20090419, end: 20090512
  6. CORTICOSTEROID [Concomitant]
     Dates: start: 20090525, end: 20090528
  7. ANTIHISTAMINE NOS [Concomitant]
     Indication: PROPHYLAXIS
     Dates: start: 20090527, end: 20090527
  8. OXYGESIC [Concomitant]
     Indication: ANALGESIA
     Dates: start: 20090418
  9. IBUPROFEN [Concomitant]
     Indication: ANALGESIA
     Dates: start: 20090409
  10. NOVAMINSULFON [Concomitant]
     Indication: ANALGESIA
     Dates: start: 20090418
  11. PANTOZOL [Concomitant]
     Indication: GASTRITIS PROPHYLAXIS
     Dates: start: 20090408
  12. NULYTELY [Concomitant]
     Dates: start: 20090429
  13. METOCLOPRAMIDE [Concomitant]
     Dates: start: 20090507

REACTIONS (3)
  - CHEST PAIN [None]
  - CYTOKINE RELEASE SYNDROME [None]
  - OBSTRUCTION [None]
